FAERS Safety Report 23246253 (Version 2)
Quarter: 2023Q4

REPORT INFORMATION
  Report Type: Report from Study
  Country: US (occurrence: US)
  Receive Date: 20231130
  Receipt Date: 20231205
  Transmission Date: 20240110
  Serious: Yes (Other)
  Sender: FDA-Public Use
  Company Number: US-ABBVIE-5519712

PATIENT
  Age: 48 Year
  Sex: Male

DRUGS (2)
  1. RINVOQ [Suspect]
     Active Substance: UPADACITINIB
     Indication: Colitis ulcerative
     Dosage: STRENGTH: 45MG?ER
     Route: 048
     Dates: start: 20230826, end: 20230915
  2. RINVOQ [Suspect]
     Active Substance: UPADACITINIB
     Indication: Colitis ulcerative
     Dosage: FIRST ADMIN DATE : 2023
     Route: 048
     Dates: end: 202311

REACTIONS (1)
  - Ileostomy [Recovering/Resolving]

NARRATIVE: CASE EVENT DATE: 20231116
